FAERS Safety Report 14547869 (Version 4)
Quarter: 2019Q1

REPORT INFORMATION
  Report Type: Spontaneous
  Country: FR (occurrence: FR)
  Receive Date: 20180219
  Receipt Date: 20190114
  Transmission Date: 20190417
  Serious: Yes (Disabling)
  Sender: FDA-Public Use
  Company Number: FR-TEVA-2018-FR-848120

PATIENT
  Age: 34 Year
  Sex: Female

DRUGS (2)
  1. COPAXONE [Suspect]
     Active Substance: GLATIRAMER ACETATE
     Indication: MULTIPLE SCLEROSIS
     Route: 058
     Dates: start: 20180103
  2. COPAXONE [Suspect]
     Active Substance: GLATIRAMER ACETATE
     Route: 058

REACTIONS (17)
  - Injection site induration [Not Recovered/Not Resolved]
  - Injection site pain [Unknown]
  - Influenza like illness [Not Recovered/Not Resolved]
  - Injection site pain [Not Recovered/Not Resolved]
  - Back pain [Unknown]
  - Tremor [Unknown]
  - Injection site mass [Recovering/Resolving]
  - Blood pressure decreased [Not Recovered/Not Resolved]
  - Feeling cold [Unknown]
  - Overwork [Unknown]
  - Injection site haemorrhage [Unknown]
  - Injection site haematoma [Unknown]
  - Injection site haematoma [Unknown]
  - Injection site extravasation [Unknown]
  - Fatigue [Unknown]
  - Pain [Not Recovered/Not Resolved]
  - Anxiety [Unknown]

NARRATIVE: CASE EVENT DATE: 2018
